FAERS Safety Report 11478991 (Version 1)
Quarter: 2015Q3

REPORT INFORMATION
  Report Type: Spontaneous
  Country: US (occurrence: US)
  Receive Date: 20150909
  Receipt Date: 20150909
  Transmission Date: 20151125
  Serious: No
  Sender: FDA-Public Use
  Company Number: US-JAZZ-2014-US-012996

PATIENT
  Age: 73 Year
  Sex: Female

DRUGS (3)
  1. XYREM [Suspect]
     Active Substance: SODIUM OXYBATE
     Indication: CATAPLEXY
     Dosage: 3 G, BID
     Route: 048
     Dates: start: 200309, end: 20141006
  2. HYDROCODONE [Suspect]
     Active Substance: HYDROCODONE
     Indication: TOOTHACHE
     Dosage: UNK
     Dates: start: 20141006
  3. XYREM [Suspect]
     Active Substance: SODIUM OXYBATE
     Indication: NARCOLEPSY
     Dosage: 2.25 G, BID
     Route: 048
     Dates: start: 200302, end: 2003

REACTIONS (2)
  - Toothache [Unknown]
  - Sedation [Unknown]

NARRATIVE: CASE EVENT DATE: 20141006
